FAERS Safety Report 13823783 (Version 1)
Quarter: 2017Q3

REPORT INFORMATION
  Report Type: Spontaneous
  Country: US (occurrence: US)
  Receive Date: 20170802
  Receipt Date: 20170802
  Transmission Date: 20171127
  Serious: No
  Sender: FDA-Public Use
  Company Number: US-PFIZER INC-2017334111

PATIENT
  Sex: Female

DRUGS (3)
  1. XELJANZ XR [Suspect]
     Active Substance: TOFACITINIB CITRATE
     Dosage: 11 MG, UNK
  2. CELEBREX [Suspect]
     Active Substance: CELECOXIB
     Dosage: 200 MG, UNK
  3. METHOTREXATE SODIUM. [Suspect]
     Active Substance: METHOTREXATE SODIUM
     Dosage: 5 MG, WEEKLY

REACTIONS (13)
  - Headache [Unknown]
  - Enthesopathy [Unknown]
  - Joint range of motion decreased [Unknown]
  - Tenderness [Unknown]
  - Fatigue [Unknown]
  - Body mass index increased [Unknown]
  - Arthralgia [Unknown]
  - Weight fluctuation [Unknown]
  - Dizziness [Unknown]
  - Fibromyalgia [Unknown]
  - Myalgia [Unknown]
  - Seasonal allergy [Unknown]
  - Joint swelling [Unknown]
